FAERS Safety Report 12647807 (Version 3)
Quarter: 2016Q3

REPORT INFORMATION
  Report Type: Report from Study
  Country: ES (occurrence: ES)
  Receive Date: 20160812
  Receipt Date: 20160903
  Transmission Date: 20161109
  Serious: Yes (Hospitalization)
  Sender: FDA-Public Use
  Company Number: ES-ROCHE-1778645

PATIENT
  Age: 74 Year
  Sex: Male
  Weight: 60.2 kg

DRUGS (10)
  1. ADIRO [Concomitant]
     Active Substance: ASPIRIN
     Indication: AORTIC ANEURYSM
     Route: 065
     Dates: start: 2010
  2. PARACETAMOL [Concomitant]
     Active Substance: ACETAMINOPHEN
     Indication: PROPHYLAXIS
  3. ENALAPRIL [Concomitant]
     Active Substance: ENALAPRIL
     Indication: HYPERTENSION
     Route: 065
     Dates: start: 2014
  4. PACLITAXEL. [Suspect]
     Active Substance: PACLITAXEL
     Indication: NON-SMALL CELL LUNG CANCER STAGE IV
     Dosage: (DOSAGE TAKEN FROM PROTOCOL)?DATE OF THE MOST RECENT DOSE PRIOR TO THE ONSET OF EVENTS: 25/JAN/2016
     Route: 042
     Dates: start: 20151117, end: 20160125
  5. CEFIXIMA [Concomitant]
     Active Substance: CEFIXIME
     Route: 065
     Dates: start: 20160425, end: 20160501
  6. AUGMENTINE [Concomitant]
     Active Substance: AMOXICILLIN\CLAVULANATE POTASSIUM
     Indication: RESPIRATORY TRACT INFECTION
     Route: 065
     Dates: start: 20160617, end: 20160626
  7. ATEZOLIZUMAB [Suspect]
     Active Substance: ATEZOLIZUMAB
     Indication: NON-SMALL CELL LUNG CANCER STAGE IV
     Dosage: DATE OF THE MOST RECENT DOSE PRIOR TO THE FIRST EPISODE OF PNEUMONITIS: 18/APR/2016
     Route: 042
     Dates: start: 20151117
  8. ATEZOLIZUMAB [Suspect]
     Active Substance: ATEZOLIZUMAB
     Dosage: REINTRODUCTION DOSE.?DATE OF THE MOST RECENT DOSE PRIOR TO THE SECOND EPISODE OF PNEUMONITIS: 06/JUN
     Route: 042
     Dates: start: 20160606
  9. ATEZOLIZUMAB [Suspect]
     Active Substance: ATEZOLIZUMAB
     Dosage: REINTRODUCTION DOSE.?DATE OF THE MOST RECENT DOSE PRIOR TO RESPIRATORY INSUFFICIENCY: 02/JUL/2016
     Route: 042
  10. CARBOPLATIN. [Suspect]
     Active Substance: CARBOPLATIN
     Indication: NON-SMALL CELL LUNG CANCER STAGE IV
     Dosage: AUC=6 (DOSAGE TAKEN FROM PROTOCOL)?DATE OF THE MOST RECENT DOSE PRIOR TO THE ONSET OF EVENTS: 25/JAN
     Route: 042
     Dates: start: 20151117, end: 20160125

REACTIONS (2)
  - Respiratory failure [Recovered/Resolved]
  - Pneumonitis [Not Recovered/Not Resolved]

NARRATIVE: CASE EVENT DATE: 20160509
